FAERS Safety Report 9701253 (Version 1)
Quarter: 2013Q4

REPORT INFORMATION
  Report Type: Spontaneous
  Country: US (occurrence: US)
  Receive Date: 20131121
  Receipt Date: 20131121
  Transmission Date: 20140711
  Serious: No
  Sender: FDA-Public Use
  Company Number: US-GILEAD-2008-0016189

PATIENT
  Sex: Female
  Weight: 132.45 kg

DRUGS (10)
  1. LETAIRIS [Suspect]
     Indication: PULMONARY ARTERIAL HYPERTENSION
     Route: 048
     Dates: start: 20080317
  2. COREG [Concomitant]
     Route: 048
  3. LASIX [Concomitant]
     Route: 048
  4. LIPITOR [Concomitant]
     Route: 048
  5. IMDUR [Concomitant]
     Route: 048
  6. LISINOPRIL [Concomitant]
     Route: 048
  7. PRILOSEC [Concomitant]
     Route: 048
  8. BENICAR [Concomitant]
     Route: 048
  9. ASPIRIN [Concomitant]
     Route: 048
  10. PLAVIX [Concomitant]
     Route: 048

REACTIONS (1)
  - Local swelling [Unknown]
